FAERS Safety Report 5353733-7 (Version None)
Quarter: 2007Q2

REPORT INFORMATION
  Report Type: 
  Country: None (occurrence: None)
  Receive Date: 20070521
  Receipt Date: 20070123
  Transmission Date: 20071010
  Serious: No
  Sender: FDA-Public Use
  Company Number: WAES 0701USA04025

PATIENT
  Age: 65 Year
  Sex: Male
  Weight: 113.8529 kg

DRUGS (4)
  1. JANUVIA [Suspect]
     Indication: DIABETES MELLITUS NON-INSULIN-DEPENDENT
     Dosage: 100 MG/DAILY/PO
     Route: 048
     Dates: start: 20061122, end: 20061204
  2. DEMADEX [Concomitant]
  3. LEVAQUIN [Concomitant]
  4. HYDROXYZINE HYDROCHLORIDE [Concomitant]

REACTIONS (2)
  - RASH [None]
  - URTICARIA [None]
